FAERS Safety Report 4494954-5 (Version None)
Quarter: 2004Q4

REPORT INFORMATION
  Report Type: 
  Country: None (occurrence: None)
  Receive Date: 20041105
  Receipt Date: 20041105
  Transmission Date: 20050328
  Serious: Yes (Life-Threatening, Hospitalization, Disabling)
  Sender: FDA-Public Use
  Company Number: None

PATIENT
  Age: 62 Year
  Sex: Male
  Weight: 104.3273 kg

DRUGS (4)
  1. LIPITOR [Suspect]
     Indication: BLOOD CHOLESTEROL INCREASED
     Dosage: 50MG    ORALY
     Route: 048
     Dates: start: 19960101, end: 20030701
  2. GLOUIPAHGE [Concomitant]
  3. NOVOLIN 70/30 [Concomitant]
  4. EFFEXOR [Concomitant]

REACTIONS (2)
  - POLYMYOSITIS [None]
  - RENAL FAILURE ACUTE [None]
